FAERS Safety Report 7239934-1 (Version None)
Quarter: 2011Q1

REPORT INFORMATION
  Report Type: 
  Country: None (occurrence: None)
  Receive Date: 20110124
  Receipt Date: 20110113
  Transmission Date: 20110831
  Serious: Yes (Hospitalization)
  Sender: FDA-Public Use
  Company Number: US-BIOGENIDEC-2010BI044819

PATIENT
  Sex: Female
  Weight: 49 kg

DRUGS (26)
  1. TYSABRI [Suspect]
     Indication: MULTIPLE SCLEROSIS
     Route: 042
     Dates: start: 20070830, end: 20100810
  2. FENTANYL [Concomitant]
     Route: 062
  3. ACETAMINOPHEN [Concomitant]
  4. COLACE [Concomitant]
  5. DULCOLAX [Concomitant]
     Route: 054
  6. POTASSIUM CHLORIDE [Concomitant]
  7. BACLOFEN [Concomitant]
     Route: 048
  8. FENTANYL [Concomitant]
     Route: 042
  9. NICOTINE [Concomitant]
     Route: 062
  10. LOVENOX [Concomitant]
     Route: 058
  11. MAGNESIUM SULFATE [Concomitant]
  12. SODIUM PHOSPHATE [Concomitant]
     Route: 054
  13. ACETAMINOPHEN [Concomitant]
     Indication: BREAKTHROUGH PAIN
  14. PROCALAMINE [Concomitant]
  15. CALCIUM GLUCONATE [Concomitant]
  16. MORPHINE [Concomitant]
  17. DULOXETINE [Concomitant]
     Indication: PAIN
  18. HYDROCODONE [Concomitant]
     Indication: BREAKTHROUGH PAIN
  19. OMEPRAZOLE [Concomitant]
  20. DULOXETINE [Concomitant]
     Indication: DEPRESSION
  21. MILK OF MAGNESIA TAB [Concomitant]
  22. MACROBID [Concomitant]
     Indication: PROPHYLAXIS URINARY TRACT INFECTION
  23. INFLUENZA VACCINE [Concomitant]
  24. SODIUM PHOSPHATE [Concomitant]
  25. DONEPEZIL HCL [Concomitant]
  26. FENTANYL [Concomitant]
     Route: 062

REACTIONS (5)
  - GRAND MAL CONVULSION [None]
  - MULTIPLE SCLEROSIS RELAPSE [None]
  - URINARY TRACT INFECTION [None]
  - FALL [None]
  - PAIN IN EXTREMITY [None]
